FAERS Safety Report 19944966 (Version 1)
Quarter: 2021Q4

REPORT INFORMATION
  Report Type: Spontaneous
  Country: US (occurrence: US)
  Receive Date: 20211012
  Receipt Date: 20211012
  Transmission Date: 20220303
  Serious: No
  Sender: FDA-Public Use
  Company Number: US-PFIZER INC-2021328764

PATIENT
  Age: 86 Year
  Sex: Male

DRUGS (2)
  1. NIFEDIPINE [Suspect]
     Active Substance: NIFEDIPINE
     Dosage: 60 MG,
  2. NIFEDIPINE [Suspect]
     Active Substance: NIFEDIPINE
     Dosage: 90 MG

REACTIONS (1)
  - Drug ineffective [Unknown]
